FAERS Safety Report 12635344 (Version 3)
Quarter: 2016Q3

REPORT INFORMATION
  Report Type: Spontaneous
  Country: US (occurrence: US)
  Receive Date: 20160808
  Receipt Date: 20160916
  Transmission Date: 20161109
  Serious: Yes (Other)
  Sender: FDA-Public Use
  Company Number: US-ASTRAZENECA-2016SE84520

PATIENT
  Sex: Female

DRUGS (2)
  1. BRILINTA [Suspect]
     Active Substance: TICAGRELOR
     Indication: ACUTE CORONARY SYNDROME
     Dosage: EIGHT TIMES A DAY
     Route: 048
  2. BRILINTA [Suspect]
     Active Substance: TICAGRELOR
     Indication: ACUTE CORONARY SYNDROME
     Route: 048
     Dates: start: 20160803

REACTIONS (12)
  - Hypoaesthesia [Unknown]
  - Gait disturbance [Unknown]
  - Renal colic [Unknown]
  - Limb discomfort [Unknown]
  - Fear [Unknown]
  - Chest pain [Unknown]
  - Contusion [Unknown]
  - Depression [Unknown]
  - Memory impairment [Unknown]
  - Off label use [Unknown]
  - Myocardial infarction [Unknown]
  - Confusional state [Unknown]
